FAERS Safety Report 6191854-X (Version None)
Quarter: 2009Q2

REPORT INFORMATION
  Report Type: 
  Country: None (occurrence: None)
  Receive Date: 20090515
  Receipt Date: 20090505
  Transmission Date: 20091009
  Serious: Yes (Other)
  Sender: FDA-Public Use
  Company Number: CN-ELI_LILLY_AND_COMPANY-CN200905000543

PATIENT
  Sex: Male

DRUGS (1)
  1. CECLOR [Suspect]
     Indication: NASOPHARYNGITIS
     Dosage: 125 MG, 3/D
     Route: 048
     Dates: start: 20090405, end: 20090410

REACTIONS (1)
  - TESTICULAR MASS [None]
